FAERS Safety Report 16362873 (Version 4)
Quarter: 2019Q3

REPORT INFORMATION
  Report Type: Report from Study
  Country: US (occurrence: US)
  Receive Date: 20190528
  Receipt Date: 20190924
  Transmission Date: 20191004
  Serious: Yes (Other)
  Sender: FDA-Public Use
  Company Number: PHHY2019US116878

PATIENT
  Age: 44 Year
  Sex: Female

DRUGS (7)
  1. PREDNISON [Suspect]
     Active Substance: PREDNISONE
     Indication: RELAPSING-REMITTING MULTIPLE SCLEROSIS
     Dosage: UNK
     Route: 065
     Dates: start: 20190716, end: 20190723
  2. TOPIRAMATE. [Concomitant]
     Active Substance: TOPIRAMATE
     Indication: TENSION HEADACHE
     Dosage: UNK
     Route: 065
     Dates: start: 20190716
  3. VITAMIN D [Concomitant]
     Active Substance: VITAMIN D NOS
     Indication: VITAMIN D DEFICIENCY
     Dosage: 50000 U, UNK
     Route: 065
  4. GILENYA [Suspect]
     Active Substance: FINGOLIMOD HYDROCHLORIDE
     Indication: MULTIPLE SCLEROSIS
     Dosage: UNK, QD
     Route: 048
  5. CYANOCOBALAMIN. [Concomitant]
     Active Substance: CYANOCOBALAMIN
     Indication: VITAMIN B12 DEFICIENCY
     Dosage: 1000 MCG/ML, UNK
     Route: 065
     Dates: start: 20190405, end: 20190705
  6. PREDNISON [Suspect]
     Active Substance: PREDNISONE
     Indication: PIRIFORMIS SYNDROME
  7. PROPRANOLOL HCL [Concomitant]
     Active Substance: PROPRANOLOL HYDROCHLORIDE
     Indication: HYPERTENSION
     Dosage: 40 MG, BID
     Route: 065
     Dates: start: 20190405

REACTIONS (19)
  - Central nervous system lesion [Unknown]
  - Balance disorder [Unknown]
  - White blood cell count increased [Unknown]
  - Fatigue [Unknown]
  - Amnesia [Unknown]
  - Alanine aminotransferase increased [Unknown]
  - Diplopia [Unknown]
  - Blindness unilateral [Unknown]
  - Colour blindness acquired [Unknown]
  - Piriformis syndrome [Unknown]
  - Gait disturbance [Unknown]
  - Trigeminal neuralgia [Recovered/Resolved]
  - Eye pain [Unknown]
  - Lymphocyte count decreased [Unknown]
  - Dyschromatopsia [Unknown]
  - Tremor [Unknown]
  - Blood alkaline phosphatase increased [Unknown]
  - Urinary tract infection [Unknown]
  - Blister [Unknown]

NARRATIVE: CASE EVENT DATE: 20181203
